FAERS Safety Report 19106023 (Version 3)
Quarter: 2021Q2

REPORT INFORMATION
  Report Type: Report from Study
  Country: US (occurrence: CA)
  Receive Date: 20210407
  Receipt Date: 20210423
  Transmission Date: 20210717
  Serious: Yes (Hospitalization)
  Sender: FDA-Public Use
  Company Number: US-PFIZER INC-2021339919

PATIENT
  Age: 33 Year
  Sex: Male
  Weight: 83.1 kg

DRUGS (4)
  1. METHOTREXATE SODIUM. [Suspect]
     Active Substance: METHOTREXATE SODIUM
     Dosage: 1751 MG (TOTAL DOSE ADMINISTERED THIS COURSE)
     Route: 042
     Dates: end: 20210227
  2. METHOTREXATE SODIUM. [Suspect]
     Active Substance: METHOTREXATE SODIUM
     Dosage: 30 MG (TOTAL DOSE ADMINISTERED THIS COURSE)
     Route: 037
     Dates: end: 20210227
  3. ONCASPAR [Suspect]
     Active Substance: PEGASPARGASE
     Dosage: 7500 UNIT (TOTAL DOSE ADMINISTERED THIS COURSE)
     Dates: end: 20210208
  4. VINCRISTINE SULFATE. [Suspect]
     Active Substance: VINCRISTINE SULFATE
     Dosage: 10 MG (TOTAL DOSE ADMINISTERED THIS COURSE)
     Dates: end: 20210227

REACTIONS (1)
  - Febrile neutropenia [Recovered/Resolved]

NARRATIVE: CASE EVENT DATE: 20210305
